FAERS Safety Report 10665386 (Version 2)
Quarter: 2015Q1

REPORT INFORMATION
  Report Type: Spontaneous
  Country: US (occurrence: None)
  Receive Date: 20141208
  Receipt Date: 20150128
  Transmission Date: 20150720
  Serious: Yes (Hospitalization, Other)
  Sender: FDA-Public Use
  Company Number: 2014TUS007105

PATIENT
  Age: 46 Year
  Sex: Female
  Weight: 102 kg

DRUGS (2)
  1. OMEPRAZOLE. [Concomitant]
     Active Substance: OMEPRAZOLE
  2. BRINTELLIX [Suspect]
     Active Substance: VORTIOXETINE HYDROBROMIDE
     Indication: DEPRESSION
     Route: 048
     Dates: start: 20140724, end: 20140809

REACTIONS (13)
  - Anger [None]
  - Abdominal discomfort [None]
  - Drug ineffective [None]
  - Anxiety [None]
  - Serotonin syndrome [None]
  - Panic attack [None]
  - Depressed mood [None]
  - Dyspepsia [None]
  - Psychomotor hyperactivity [None]
  - Nausea [None]
  - Hepatic enzyme increased [None]
  - Abdominal pain [None]
  - Suicidal ideation [None]

NARRATIVE: CASE EVENT DATE: 20140803
